FAERS Safety Report 26143020 (Version 1)
Quarter: 2025Q4

REPORT INFORMATION
  Report Type: Spontaneous
  Country: US (occurrence: US)
  Receive Date: 20251211
  Receipt Date: 20251211
  Transmission Date: 20260117
  Serious: No
  Sender: ALVOGEN
  Company Number: US-ALVOGEN-2024095758

PATIENT
  Sex: Female

DRUGS (1)
  1. LEVOTHYROXINE [Suspect]
     Active Substance: LEVOTHYROXINE
     Indication: Hypothyroidism
     Dosage: STRENGTH: 75 MCG, PURPLE TABLET WITH MARKINGS ^T|4^ AND ^75, TOOK 20 TABLETS
     Route: 048
     Dates: start: 202409, end: 202410

REACTIONS (6)
  - Throat irritation [Unknown]
  - Wheezing [Unknown]
  - Cough [Not Recovered/Not Resolved]
  - Dry throat [Unknown]
  - Product physical issue [Unknown]
  - Product solubility abnormal [Unknown]

NARRATIVE: CASE EVENT DATE: 20240101
